FAERS Safety Report 21191450 (Version 1)
Quarter: 2022Q3

REPORT INFORMATION
  Report Type: Spontaneous
  Country: US (occurrence: US)
  Receive Date: 20220809
  Receipt Date: 20220809
  Transmission Date: 20221026
  Serious: No
  Sender: FDA-Public Use
  Company Number: US-JOURNEY MEDICAL CORPORATION-2022JNY00681

PATIENT
  Age: 33 Year
  Sex: Female
  Weight: 63.039 kg

DRUGS (8)
  1. QBREXZA [Suspect]
     Active Substance: GLYCOPYRRONIUM TOSYLATE
     Indication: Hyperhidrosis
     Dosage: WIPE EACH ARMPIT WITH CLOTH 1X/DAY AND WASH HANDS AFTER USE
     Dates: start: 2018
  2. QBREXZA [Suspect]
     Active Substance: GLYCOPYRRONIUM TOSYLATE
     Dosage: WIPE EACH ARMPIT WITH CLOTH AND WASH HANDS AFTER USE; USES INTERMITTENTLY
  3. MONTELUKAST [Concomitant]
     Active Substance: MONTELUKAST SODIUM
  4. ALLEGRA [Concomitant]
     Active Substance: FEXOFENADINE HYDROCHLORIDE
  5. VITAMIN D3 [Concomitant]
     Active Substance: CHOLECALCIFEROL
     Dosage: OCCASIONALLY
  6. VITAMIN C [Concomitant]
     Active Substance: ASCORBIC ACID
     Dosage: OCCASIONALLY
  7. MAGNESIUM [Concomitant]
     Active Substance: MAGNESIUM
     Dosage: OCCASIONALLY
  8. ADVIL [Concomitant]
     Active Substance: IBUPROFEN
     Dosage: UNK, AS NEEDED

REACTIONS (7)
  - Vision blurred [Not Recovered/Not Resolved]
  - Mydriasis [Not Recovered/Not Resolved]
  - Maternal exposure during breast feeding [Unknown]
  - Accidental exposure to product [Recovered/Resolved]
  - Product dose omission issue [Not Recovered/Not Resolved]
  - Product packaging difficult to open [Unknown]
  - Product physical issue [Recovered/Resolved]

NARRATIVE: CASE EVENT DATE: 20220624
